FAERS Safety Report 19921635 (Version 3)
Quarter: 2021Q4

REPORT INFORMATION
  Report Type: Other
  Country: US (occurrence: None)
  Receive Date: 20211006
  Receipt Date: 20211217
  Transmission Date: 20220303
  Serious: Yes (Death)
  Sender: FDA-Public Use
  Company Number: US-ROCHE-2681049

PATIENT
  Sex: Male

DRUGS (1)
  1. CELLCEPT [Suspect]
     Active Substance: MYCOPHENOLATE MOFETIL
     Indication: Pemphigus
     Dosage: 2 TABLET IN THE AM AND 2 TABLET IN THE PM
     Route: 065
     Dates: start: 200504

REACTIONS (3)
  - Cardiac failure [Fatal]
  - Intercepted product prescribing error [Unknown]
  - Off label use [Unknown]
